FAERS Safety Report 6563371-6 (Version None)
Quarter: 2010Q1

REPORT INFORMATION
  Report Type: 
  Country: None (occurrence: None)
  Receive Date: 20100130
  Receipt Date: 20091218
  Transmission Date: 20100710
  Serious: Yes (Hospitalization)
  Sender: FDA-Public Use
  Company Number: US-ABBOTT-09P-163-0615504-00

PATIENT
  Sex: Male
  Weight: 97.61 kg

DRUGS (12)
  1. HUMIRA [Suspect]
     Indication: RHEUMATOID ARTHRITIS
     Route: 058
     Dates: end: 20080601
  2. HUMIRA [Suspect]
     Route: 058
     Dates: start: 20050101, end: 20080101
  3. METHOTREXATE [Concomitant]
     Indication: RHEUMATOID ARTHRITIS
     Route: 048
  4. NIASPAN [Concomitant]
     Indication: BLOOD CHOLESTEROL INCREASED
     Route: 048
  5. LIPITOR [Concomitant]
     Indication: BLOOD CHOLESTEROL
     Route: 048
  6. TRILIPIX [Concomitant]
     Indication: BLOOD CHOLESTEROL
     Route: 048
  7. PLAVIX [Concomitant]
     Indication: VASCULAR GRAFT
     Route: 048
  8. METOPROLOL [Concomitant]
     Indication: HYPERTENSION
     Route: 048
  9. PREDNISONE [Concomitant]
     Indication: RHEUMATOID ARTHRITIS
     Dosage: 10-15
     Route: 048
  10. ASPIRIN [Concomitant]
     Indication: PROPHYLAXIS
     Route: 048
  11. ASPIRIN [Concomitant]
     Indication: FLUSHING
  12. FISH OIL [Concomitant]
     Indication: MEDICAL DIET
     Dosage: 1-2GM
     Route: 048

REACTIONS (3)
  - CHEST PAIN [None]
  - DRUG INEFFECTIVE [None]
  - RHEUMATOID ARTHRITIS [None]
